FAERS Safety Report 25201734 (Version 1)
Quarter: 2025Q2

REPORT INFORMATION
  Report Type: Report from Study
  Country: MX (occurrence: MX)
  Receive Date: 20250416
  Receipt Date: 20250416
  Transmission Date: 20250716
  Serious: Yes (Other)
  Sender: NOVARTIS
  Company Number: MX-002147023-NVSC2025MX051473

PATIENT
  Sex: Female
  Weight: 63 kg

DRUGS (4)
  1. DIOVAN [Suspect]
     Active Substance: VALSARTAN
     Indication: Hypertension
     Dosage: 1 DOSAGE FORM (80 MG), QD
     Route: 048
     Dates: start: 2021, end: 2023
  2. DIOVAN [Suspect]
     Active Substance: VALSARTAN
     Dosage: 2 DOSAGE FORM (80 MG), Q12H
     Route: 048
     Dates: start: 2023
  3. HYDROCHLOROTHIAZIDE\VALSARTAN [Suspect]
     Active Substance: HYDROCHLOROTHIAZIDE\VALSARTAN
     Indication: Hypertension
     Dosage: 1 DOSAGE FORM OF 160/12.5 MG, QD TABLET
     Route: 048
     Dates: start: 2018, end: 2021
  4. JANUMET [Concomitant]
     Active Substance: METFORMIN HYDROCHLORIDE\SITAGLIPTIN PHOSPHATE
     Indication: Diabetes mellitus
     Dosage: 1 DOSAGE FORM, QD
     Route: 048
     Dates: start: 2024

REACTIONS (4)
  - Arrhythmia [Recovering/Resolving]
  - Fluid retention [Unknown]
  - Swelling [Unknown]
  - Off label use [Unknown]

NARRATIVE: CASE EVENT DATE: 20240101
